FAERS Safety Report 23620583 (Version 1)
Quarter: 2024Q1

REPORT INFORMATION
  Report Type: Spontaneous
  Country: ES (occurrence: ES)
  Receive Date: 20240312
  Receipt Date: 20240312
  Transmission Date: 20240410
  Serious: Yes (Hospitalization, Other)
  Sender: FDA-Public Use
  Company Number: ES-AEMPS-1493133

PATIENT
  Age: 57 Year
  Sex: Female

DRUGS (2)
  1. CARBOPLATIN [Suspect]
     Active Substance: CARBOPLATIN
     Indication: Endometrial cancer
     Dosage: UNK, 2 CYCLES
     Route: 065
     Dates: start: 20220704, end: 20220810
  2. TAXOL [Suspect]
     Active Substance: PACLITAXEL
     Indication: Endometrial cancer
     Dosage: UNK, 2 CYCLES
     Route: 065
     Dates: start: 20220704, end: 20220810

REACTIONS (2)
  - Febrile neutropenia [Recovering/Resolving]
  - Vaginal infection [Unknown]

NARRATIVE: CASE EVENT DATE: 20220819
